FAERS Safety Report 4996214-2 (Version None)
Quarter: 2006Q2

REPORT INFORMATION
  Report Type: 
  Country: None (occurrence: None)
  Receive Date: 20060508
  Receipt Date: 20060317
  Transmission Date: 20061013
  Serious: Yes (Other)
  Sender: FDA-Public Use
  Company Number: ES-ABBOTT-06P-144-0328620-00

PATIENT
  Sex: Male

DRUGS (2)
  1. BREMON TABLETS [Suspect]
     Indication: UPPER RESPIRATORY TRACT INFECTION
     Route: 048
     Dates: start: 20060123, end: 20060203
  2. IBUPROFEN [Concomitant]
     Indication: PYREXIA
     Dates: start: 20060123, end: 20060126

REACTIONS (5)
  - ALANINE AMINOTRANSFERASE INCREASED [None]
  - ASPARTATE AMINOTRANSFERASE INCREASED [None]
  - CHOLURIA [None]
  - HEPATOTOXICITY [None]
  - JAUNDICE [None]
